FAERS Safety Report 5526633-7 (Version None)
Quarter: 2007Q4

REPORT INFORMATION
  Report Type: 
  Country: None (occurrence: None)
  Receive Date: 20071127
  Receipt Date: 20071119
  Transmission Date: 20080405
  Serious: Yes (Other)
  Sender: FDA-Public Use
  Company Number: US-AMGEN-STX253273

PATIENT
  Sex: Female

DRUGS (1)
  1. ENBREL [Suspect]
     Indication: RHEUMATOID ARTHRITIS
     Route: 058
     Dates: start: 20030127

REACTIONS (4)
  - BLOOD CALCIUM INCREASED [None]
  - INSOMNIA [None]
  - PARATHYROID DISORDER [None]
  - PARATHYROID TUMOUR BENIGN [None]
